FAERS Safety Report 8814334 (Version 3)
Quarter: 2013Q1

REPORT INFORMATION
  Report Type: Spontaneous
  Country: ES (occurrence: None)
  Receive Date: 20120925
  Receipt Date: 20130228
  Transmission Date: 20140127
  Serious: Yes (Hospitalization)
  Sender: FDA-Public Use
  Company Number: JPI-P-025209

PATIENT
  Age: 60 Year
  Sex: Male

DRUGS (6)
  1. XYREM (500 MILLIGRAM/MILLILITERS, SOLUTION) (SODIUM OXYBATE) [Suspect]
     Indication: CATAPLEXY
     Route: 048
     Dates: start: 20120710
  2. VENLAFAXINE [Concomitant]
  3. BISOPROLOL FUMARATE [Concomitant]
  4. MODAFINIL [Concomitant]
  5. PRAVASTATIN [Concomitant]
  6. ENALAPRIL [Concomitant]

REACTIONS (1)
  - Bladder cancer [None]
